FAERS Safety Report 24034382 (Version 3)
Quarter: 2024Q3

REPORT INFORMATION
  Report Type: Report from Study
  Country: CN (occurrence: CN)
  Receive Date: 20240701
  Receipt Date: 20240701
  Transmission Date: 20241017
  Serious: No
  Sender: ROCHE
  Company Number: CN-ROCHE-3532270

PATIENT
  Age: 1 Month

DRUGS (1)
  1. EVRYSDI [Suspect]
     Active Substance: RISDIPLAM
     Indication: Spinal muscular atrophy
     Route: 048
     Dates: start: 20230714

REACTIONS (5)
  - Bronchitis [Unknown]
  - Hepatic function abnormal [Unknown]
  - Myocardial necrosis marker increased [Unknown]
  - Blood triglycerides increased [Unknown]
  - Coronavirus infection [Unknown]

NARRATIVE: CASE EVENT DATE: 20230725
